FAERS Safety Report 20122457 (Version 1)
Quarter: 2021Q4

REPORT INFORMATION
  Report Type: Spontaneous
  Country: US (occurrence: US)
  Receive Date: 20211128
  Receipt Date: 20211128
  Transmission Date: 20220304
  Serious: No
  Sender: FDA-Public Use
  Company Number: US-PURDUE-USA-2020-0178011

PATIENT
  Sex: Female

DRUGS (3)
  1. MORPHINE SULFATE [Suspect]
     Active Substance: MORPHINE SULFATE
     Indication: Bone disorder
     Dosage: ALWAYS 30MG, TAKING 180MG A DAY
     Route: 048
     Dates: start: 1989
  2. MORPHINE SULFATE [Suspect]
     Active Substance: MORPHINE SULFATE
     Indication: Bone disorder
     Dosage: 90 INSTEAD OF 180 MG
     Route: 065
  3. VICODIN [Suspect]
     Active Substance: ACETAMINOPHEN\HYDROCODONE BITARTRATE
     Indication: Bone disorder
     Dosage: UNK
     Route: 065

REACTIONS (5)
  - Hepatic pain [Unknown]
  - Fatigue [Unknown]
  - Pain [Not Recovered/Not Resolved]
  - Anxiety [Unknown]
  - Tinnitus [Not Recovered/Not Resolved]
